FAERS Safety Report 8546180-8 (Version None)
Quarter: 2012Q3

REPORT INFORMATION
  Report Type: 
  Country: None (occurrence: None)
  Receive Date: 20120727
  Receipt Date: 20120719
  Transmission Date: 20120928
  Serious: Yes (Hospitalization)
  Sender: FDA-Public Use
  Company Number: PHHY2012US055740

PATIENT
  Age: 44 Year
  Sex: Female

DRUGS (3)
  1. CLOZAPINE [Interacting]
     Indication: PSYCHOTIC DISORDER
  2. LAMOTRIGINE [Suspect]
  3. OLANZAPINE [Concomitant]

REACTIONS (9)
  - RASH [None]
  - PYREXIA [None]
  - ANTIPSYCHOTIC DRUG LEVEL INCREASED [None]
  - NEUTROPHIL COUNT DECREASED [None]
  - DIZZINESS [None]
  - BLOOD CREATINE PHOSPHOKINASE INCREASED [None]
  - NEUROLEPTIC MALIGNANT SYNDROME [None]
  - MUSCULOSKELETAL STIFFNESS [None]
  - AGRANULOCYTOSIS [None]
